FAERS Safety Report 19229761 (Version 2)
Quarter: 2021Q2

REPORT INFORMATION
  Report Type: Spontaneous
  Country: US (occurrence: US)
  Receive Date: 20210506
  Receipt Date: 20210603
  Transmission Date: 20210717
  Serious: Yes (Other)
  Sender: FDA-Public Use
  Company Number: US-ASTRAZENECA-2021A377641

PATIENT
  Sex: Male
  Weight: 162.4 kg

DRUGS (3)
  1. BYDUREON BCISE [Concomitant]
     Active Substance: EXENATIDE
     Dosage: ON REFILL
  2. BYDUREON [Suspect]
     Active Substance: EXENATIDE
     Indication: TYPE 2 DIABETES MELLITUS
     Route: 058
  3. METFORMIN [Concomitant]
     Active Substance: METFORMIN HYDROCHLORIDE
     Indication: TYPE 2 DIABETES MELLITUS
     Route: 048

REACTIONS (4)
  - Wrong technique in device usage process [Not Recovered/Not Resolved]
  - Visual impairment [Not Recovered/Not Resolved]
  - Device issue [Unknown]
  - Retinal detachment [Not Recovered/Not Resolved]
